FAERS Safety Report 7896872-9 (Version None)
Quarter: 2011Q4

REPORT INFORMATION
  Report Type: 
  Country: None (occurrence: None)
  Receive Date: 20111104
  Receipt Date: 20111104
  Transmission Date: 20120403
  Serious: Yes (Other)
  Sender: FDA-Public Use
  Company Number: None

PATIENT
  Sex: Male
  Weight: 96.1626 kg

DRUGS (2)
  1. FANAPT [Suspect]
     Indication: PARANOIA
     Dosage: 1 MG ; 2 MG
     Dates: start: 20110701, end: 20110901
  2. FANAPT [Suspect]
     Indication: ANXIETY
     Dosage: 1 MG ; 2 MG
     Dates: start: 20110701, end: 20110901

REACTIONS (7)
  - WEIGHT INCREASED [None]
  - BACK PAIN [None]
  - PAIN IN EXTREMITY [None]
  - FEELING HOT [None]
  - ABDOMINAL PAIN [None]
  - NECK PAIN [None]
  - FATIGUE [None]
